FAERS Safety Report 4604441-9 (Version None)
Quarter: 2005Q2

REPORT INFORMATION
  Report Type: 
  Country: None (occurrence: None)
  Receive Date: 20050217
  Receipt Date: 20041119
  Transmission Date: 20051028
  Serious: No
  Sender: FDA-Public Use
  Company Number: S04-USA-07481-01

PATIENT
  Age: 88 Year
  Sex: Female

DRUGS (2)
  1. NAMENDA [Suspect]
  2. NAMENDA [Suspect]
     Dates: start: 20041101

REACTIONS (1)
  - IRRITABILITY [None]
